FAERS Safety Report 18084640 (Version 1)
Quarter: 2020Q3

REPORT INFORMATION
  Report Type: Spontaneous
  Country: US (occurrence: US)
  Receive Date: 20200728
  Receipt Date: 20200728
  Transmission Date: 20201103
  Serious: Yes (Disabling)
  Sender: FDA-Public Use
  Company Number: None

PATIENT
  Age: 44 Year
  Sex: Female
  Weight: 72 kg

DRUGS (6)
  1. EUCRISA [Concomitant]
     Active Substance: CRISABOROLE
  2. VITAMIN C [Concomitant]
     Active Substance: ASCORBIC ACID
  3. ZYRTEC [Concomitant]
     Active Substance: CETIRIZINE HYDROCHLORIDE
  4. ASSURED HAND SANITIZER 8OZ [Suspect]
     Active Substance: ALCOHOL
     Indication: PRODUCT USED FOR UNKNOWN INDICATION
  5. ATENOLOL. [Concomitant]
     Active Substance: ATENOLOL
  6. VIT D [Concomitant]
     Active Substance: VITAMIN D NOS

REACTIONS (1)
  - Dermatitis [None]

NARRATIVE: CASE EVENT DATE: 20200601
